FAERS Safety Report 5386358-8 (Version None)
Quarter: 2007Q3

REPORT INFORMATION
  Report Type: 
  Country: None (occurrence: None)
  Receive Date: 20070710
  Receipt Date: 20070627
  Transmission Date: 20080115
  Serious: Yes (Hospitalization)
  Sender: FDA-Public Use
  Company Number: MESA-2007-025

PATIENT
  Age: 32 Year
  Sex: Male

DRUGS (2)
  1. MESALAMINE [Suspect]
     Indication: COLITIS ULCERATIVE
  2. INDOMETHACIN [Concomitant]

REACTIONS (9)
  - CARDIAC TAMPONADE [None]
  - CARDIOMEGALY [None]
  - DIARRHOEA [None]
  - JUGULAR VEIN DISTENSION [None]
  - PERICARDIAL EFFUSION [None]
  - PERICARDITIS [None]
  - PLEURAL EFFUSION [None]
  - TACHYCARDIA [None]
  - TACHYPNOEA [None]
